FAERS Safety Report 6589128-8 (Version None)
Quarter: 2010Q1

REPORT INFORMATION
  Report Type: 
  Country: None (occurrence: None)
  Receive Date: 20100202
  Receipt Date: 20091201
  Transmission Date: 20100710
  Serious: Yes (Hospitalization)
  Sender: FDA-Public Use
  Company Number: WAES 0912USA00448

PATIENT
  Age: 60 Year
  Sex: Male

DRUGS (1)
  1. JANUMET [Suspect]
     Dosage: 1000MG/50 MG/BID/PO
     Route: 048

REACTIONS (1)
  - PANCREATITIS [None]
